FAERS Safety Report 8158079 (Version 2)
Quarter: 2012Q4

REPORT INFORMATION
  Report Type: 
  Country: US (occurrence: US)
  Receive Date: 20110927
  Receipt Date: 20120928
  Transmission Date: 20130627
  Serious: Yes (Other)
  Sender: FDA-Public Use
  Company Number: US-PFIZER INC-2011228245

PATIENT
  Age: 59 Year
  Sex: Female

DRUGS (5)
  1. LIPITOR [Suspect]
     Indication: BLOOD CHOLESTEROL ABNORMAL
     Dosage: 10 mg, daily
  2. LIPITOR [Suspect]
     Dosage: 10 mg, two times a day
  3. LIPITOR [Suspect]
     Dosage: 10 mg, daily
  4. LIPITOR [Suspect]
     Dosage: 10 mg, two times a day
     Dates: start: 2011
  5. LIPITOR [Suspect]
     Dosage: UNK

REACTIONS (4)
  - Muscular weakness [Recovering/Resolving]
  - Drug administration error [Unknown]
  - Stress [Unknown]
  - Pain in extremity [Unknown]
